FAERS Safety Report 10439026 (Version 1)
Quarter: 2014Q3

REPORT INFORMATION
  Report Type: Report from Study
  Country: FR (occurrence: FR)
  Receive Date: 20140908
  Receipt Date: 20140908
  Transmission Date: 20150326
  Serious: Yes (Death, Other)
  Sender: FDA-Public Use
  Company Number: FR-BAXTER-2014BAX053742

PATIENT
  Age: 15 Year
  Sex: Female

DRUGS (11)
  1. PROCARBAZINE [Suspect]
     Active Substance: PROCARBAZINE
     Dosage: AT AGE 12
     Route: 065
  2. VINCRISTINE [Suspect]
     Active Substance: VINCRISTINE
     Indication: ASTROCYTOMA, LOW GRADE
     Dosage: AT AGE 5
     Route: 037
  3. VINBLASTINE [Suspect]
     Active Substance: VINBLASTINE
     Indication: ASTROCYTOMA, LOW GRADE
     Dosage: AT AGE 11
     Route: 065
  4. ENDOXAN 1000 MG, POUDRE POUR SOLUTION INJECTABLE [Suspect]
     Active Substance: CYCLOPHOSPHAMIDE
     Indication: T-CELL TYPE ACUTE LEUKAEMIA
     Dosage: AT AGE 5
     Route: 065
  5. THIOGUANINE [Suspect]
     Active Substance: THIOGUANINE
     Indication: ASTROCYTOMA, LOW GRADE
     Dosage: AT AGE 5
     Route: 065
  6. CARBOPLATIN. [Suspect]
     Active Substance: CARBOPLATIN
     Indication: ASTROCYTOMA, LOW GRADE
     Dosage: AT AGE 5
     Route: 065
  7. PROCARBAZINE [Suspect]
     Active Substance: PROCARBAZINE
     Indication: ASTROCYTOMA, LOW GRADE
     Dosage: AT AGE 5
     Route: 065
  8. CISPLATIN. [Suspect]
     Active Substance: CISPLATIN
     Indication: ASTROCYTOMA, LOW GRADE
     Dosage: AT AGE 5
     Route: 065
  9. VINCRISTINE [Suspect]
     Active Substance: VINCRISTINE
     Dosage: AT AGE 12
     Route: 065
  10. CCNU [Suspect]
     Active Substance: LOMUSTINE
     Indication: ASTROCYTOMA, LOW GRADE
     Dosage: AT AGE 12
     Route: 065
  11. CELLTOP 100 MG/5 ML, SOLUTION INJECTABLE POUR PERFUSION [Suspect]
     Active Substance: ETOPOSIDE
     Indication: ASTROCYTOMA, LOW GRADE
     Dosage: AT AGE 5
     Route: 065

REACTIONS (2)
  - Death [Fatal]
  - Pleural fibrosis [Unknown]
